FAERS Safety Report 9038586 (Version 1)
Quarter: 2013Q1

REPORT INFORMATION
  Report Type: Spontaneous
  Country: ES (occurrence: ES)
  Receive Date: 20130129
  Receipt Date: 20130129
  Transmission Date: 20140127
  Serious: Yes (Disabling)
  Sender: FDA-Public Use
  Company Number: ES-MYLANLABS-2013S1001576

PATIENT
  Age: 6 Year
  Sex: Male

DRUGS (2)
  1. METHOTREXATE [Suspect]
     Indication: B PRECURSOR TYPE ACUTE LEUKAEMIA
     Dosage: 3 MG/M2
     Route: 041
  2. METHOTREXATE [Suspect]
     Indication: B PRECURSOR TYPE ACUTE LEUKAEMIA
     Dosage: 12MG
     Route: 037

REACTIONS (5)
  - Neurotoxicity [Not Recovered/Not Resolved]
  - Hemiparesis [Not Recovered/Not Resolved]
  - Dystonia [Not Recovered/Not Resolved]
  - Dyskinesia [Not Recovered/Not Resolved]
  - Cognitive disorder [Not Recovered/Not Resolved]
